FAERS Safety Report 7686433-9 (Version None)
Quarter: 2011Q3

REPORT INFORMATION
  Report Type: 
  Country: None (occurrence: None)
  Receive Date: 20110816
  Receipt Date: 20110808
  Transmission Date: 20111222
  Serious: Yes (Hospitalization, Other)
  Sender: FDA-Public Use
  Company Number: FR-TEVA-296281ISR

PATIENT
  Age: 17 Year
  Sex: Female

DRUGS (2)
  1. LOPERAMIDE HCL [Suspect]
  2. TRIMEBUTINE [Suspect]

REACTIONS (3)
  - OVERDOSE [None]
  - ABDOMINAL PAIN UPPER [None]
  - PANCREATIC ENZYMES INCREASED [None]
